FAERS Safety Report 16682949 (Version 1)
Quarter: 2019Q3

REPORT INFORMATION
  Report Type: Spontaneous
  Country: US (occurrence: US)
  Receive Date: 20190807
  Receipt Date: 20190807
  Transmission Date: 20191004
  Serious: Yes (Other)
  Sender: FDA-Public Use
  Company Number: None

PATIENT
  Age: 68 Year
  Sex: Female

DRUGS (1)
  1. METHYLPHENIDATE HCL EXTENDED RELEASE [Suspect]
     Active Substance: METHYLPHENIDATE HYDROCHLORIDE
     Indication: ATTENTION DEFICIT/HYPERACTIVITY DISORDER
     Dosage: ?          OTHER FREQUENCY:ONE TO TWO TABS QD;?
     Route: 048
     Dates: start: 20190724

REACTIONS (4)
  - Dry mouth [None]
  - Feeling jittery [None]
  - Disturbance in attention [None]
  - Drug ineffective [None]

NARRATIVE: CASE EVENT DATE: 20190807
